FAERS Safety Report 7362387-X (Version None)
Quarter: 2011Q1

REPORT INFORMATION
  Report Type: 
  Country: None (occurrence: None)
  Receive Date: 20110318
  Receipt Date: 20110314
  Transmission Date: 20110831
  Serious: Yes (Hospitalization)
  Sender: FDA-Public Use
  Company Number: NL-MEDIMMUNE-MEDI-0012933

PATIENT
  Sex: Male

DRUGS (2)
  1. SYNAGIS [Suspect]
     Route: 030
     Dates: start: 20110313
  2. SYNAGIS [Suspect]
     Route: 030
     Dates: start: 20110214, end: 20110214

REACTIONS (2)
  - NASOPHARYNGITIS [None]
  - SENSE OF OPPRESSION [None]
